FAERS Safety Report 5313039-9 (Version None)
Quarter: 2007Q2

REPORT INFORMATION
  Report Type: 
  Country: None (occurrence: None)
  Receive Date: 20070430
  Receipt Date: 20070404
  Transmission Date: 20071010
  Serious: Yes (Other)
  Sender: FDA-Public Use
  Company Number: JP-PFIZER INC-2007024889

PATIENT
  Age: 65 Year
  Sex: Female

DRUGS (1)
  1. CARDENALIN [Suspect]
     Dosage: DAILY DOSE:1MG
     Route: 048
     Dates: start: 20070309, end: 20070324

REACTIONS (1)
  - DIABETES INSIPIDUS [None]
